FAERS Safety Report 4345038-8 (Version None)
Quarter: 2004Q2

REPORT INFORMATION
  Report Type: 
  Country: None (occurrence: None)
  Receive Date: 20040420
  Receipt Date: 20040413
  Transmission Date: 20050107
  Serious: Yes (Life-Threatening)
  Sender: FDA-Public Use
  Company Number: 2004GB00876

PATIENT
  Age: 51 Year
  Sex: Female
  Weight: 112 kg

DRUGS (9)
  1. CRESTOR [Suspect]
     Indication: HYPERCHOLESTEROLAEMIA
     Dosage: 10 MG DAILY PO
     Route: 048
     Dates: start: 20040309, end: 20040315
  2. ASPIRIN [Concomitant]
  3. ARTHROTEC [Concomitant]
  4. INSULIN [Concomitant]
  5. CARDURA [Concomitant]
  6. THYROXINE [Concomitant]
  7. METFORMIN HCL [Concomitant]
  8. FELODIPINE [Concomitant]
  9. ATORVASTATIN [Concomitant]

REACTIONS (3)
  - DYSPEPSIA [None]
  - HAEMOGLOBIN DECREASED [None]
  - MELAENA [None]
